FAERS Safety Report 4720198-5 (Version None)
Quarter: 2005Q3

REPORT INFORMATION
  Report Type: 
  Country: None (occurrence: None)
  Receive Date: 20050721
  Receipt Date: 20050713
  Transmission Date: 20060218
  Serious: Yes (Other)
  Sender: FDA-Public Use
  Company Number: PHBS2005JP10022

PATIENT
  Age: 17 Year
  Sex: Female

DRUGS (2)
  1. IMIPRAMINE HCL [Suspect]
     Dosage: 2100 MG, ONCE/SINGLE
     Route: 048
  2. BENZODIAZEPINE DERIVATIVES [Concomitant]
     Route: 048

REACTIONS (3)
  - COMA [None]
  - THERAPEUTIC AGENT TOXICITY [None]
  - VENTRICULAR TACHYCARDIA [None]
